FAERS Safety Report 22172364 (Version 1)
Quarter: 2023Q2

REPORT INFORMATION
  Report Type: Spontaneous
  Country: CN (occurrence: CN)
  Receive Date: 20230404
  Receipt Date: 20230404
  Transmission Date: 20230721
  Serious: Yes (Other)
  Sender: FDA-Public Use
  Company Number: CN-PFIZER INC-PV202300059149

PATIENT
  Age: 61 Year
  Sex: Male
  Weight: 80 kg

DRUGS (2)
  1. CYTARABINE [Suspect]
     Active Substance: CYTARABINE
     Indication: Acute leukaemia
     Dosage: 3.8 G, 2X/DAY
     Route: 041
     Dates: start: 20230311, end: 20230316
  2. OMACETAXINE MEPESUCCINATE [Concomitant]
     Active Substance: OMACETAXINE MEPESUCCINATE
     Indication: Acute leukaemia
     Dosage: 2 MG, 1X/DAY
     Route: 041
     Dates: start: 20230312, end: 20230316

REACTIONS (3)
  - Gastrointestinal disorder [Recovering/Resolving]
  - Hypersensitivity [Recovering/Resolving]
  - Furuncle [Recovered/Resolved]

NARRATIVE: CASE EVENT DATE: 20230314
